APPROVED DRUG PRODUCT: URSODIOL
Active Ingredient: URSODIOL
Strength: 300MG
Dosage Form/Route: CAPSULE;ORAL
Application: A212452 | Product #001 | TE Code: AB
Applicant: HIBROW HEALTHCARE PRIVATE LTD
Approved: Oct 30, 2019 | RLD: No | RS: No | Type: RX